FAERS Safety Report 8826521 (Version 1)
Quarter: 2012Q4

REPORT INFORMATION
  Report Type: 
  Country: US (occurrence: US)
  Receive Date: 20121005
  Receipt Date: 20121005
  Transmission Date: 20130627
  Serious: Yes (Hospitalization)
  Sender: FDA-Public Use
  Company Number: US-COVIDIEN/TYCO HEALTHCARE/MALLINCKRODT-T201203537

PATIENT
  Age: 33 Year
  Sex: Female

DRUGS (7)
  1. EXALGO EXTENDED RELEASE [Suspect]
     Indication: PRODUCT USED FOR UNKNOWN INDICATION
     Dosage: UNK
  2. BENZODIAZEPINE DERIVATIVES [Suspect]
     Dosage: Benzo 1 mg
  3. BENZODIAZEPINE DERIVATIVES [Suspect]
     Dosage: Benzo ER 1.5 mg
  4. NORCO [Suspect]
     Dosage: UNK
  5. UNSPECIFIED INGREDIENT [Suspect]
     Dosage: 10 mg, UNK
  6. AMITRIPTYLINE [Concomitant]
     Dosage: 50 mg, UNK
  7. CITALOPRAM [Concomitant]
     Dosage: 40 mg, UNK

REACTIONS (10)
  - Intentional drug misuse [Unknown]
  - Loss of consciousness [Recovered/Resolved]
  - Somnolence [Unknown]
  - Dysarthria [Unknown]
  - Liver function test abnormal [Unknown]
  - Vomiting [Unknown]
  - Miosis [Unknown]
  - Dry mouth [Unknown]
  - Aspartate aminotransferase increased [None]
  - Alanine aminotransferase increased [None]
